FAERS Safety Report 5568916-0 (Version None)
Quarter: 2007Q4

REPORT INFORMATION
  Report Type: 
  Country: None (occurrence: None)
  Receive Date: 20071220
  Receipt Date: 20070320
  Transmission Date: 20080405
  Serious: No
  Sender: FDA-Public Use
  Company Number: A0643909A

PATIENT
  Age: 38 Year
  Sex: Male

DRUGS (5)
  1. AVODART [Suspect]
     Indication: BENIGN PROSTATIC HYPERPLASIA
     Dosage: .5MG PER DAY
     Route: 048
     Dates: start: 20070201, end: 20070215
  2. CARDURA [Concomitant]
  3. CELEBREX [Concomitant]
  4. MOTRIN [Concomitant]
  5. SYNTHROID [Concomitant]

REACTIONS (3)
  - NOCTURIA [None]
  - SEMEN VOLUME DECREASED [None]
  - SPERM COUNT DECREASED [None]
